FAERS Safety Report 5202863-9 (Version None)
Quarter: 2006Q4

REPORT INFORMATION
  Report Type: 
  Country: None (occurrence: None)
  Receive Date: 20061016
  Receipt Date: 20060804
  Transmission Date: 20070319
  Serious: No
  Sender: FDA-Public Use
  Company Number: 2006SP002917

PATIENT
  Age: 42 Year
  Sex: Female
  Weight: 62.5964 kg

DRUGS (6)
  1. LUNESTA [Suspect]
     Indication: INSOMNIA
     Dosage: 3 MG; ORAL; SEE IMAGE
     Route: 048
     Dates: start: 20060601, end: 20060601
  2. LUNESTA [Suspect]
     Indication: INSOMNIA
     Dosage: 3 MG; ORAL; SEE IMAGE
     Route: 048
     Dates: start: 20060701
  3. NORTRIPTYLINE HCL [Suspect]
     Indication: NEURALGIA
     Dosage: 50 MG; HS; ORAL; SEE IMAGE
     Route: 048
     Dates: end: 20060701
  4. NORTRIPTYLINE HCL [Suspect]
     Indication: NEURALGIA
     Dosage: 50 MG; HS; ORAL; SEE IMAGE
     Route: 048
     Dates: start: 20060701
  5. ZYRTEC [Concomitant]
  6. AMBIEN [Concomitant]

REACTIONS (2)
  - DYSGEUSIA [None]
  - DYSPNOEA [None]
